FAERS Safety Report 6836735-0 (Version None)
Quarter: 2010Q3

REPORT INFORMATION
  Report Type: 
  Country: None (occurrence: None)
  Receive Date: 20100713
  Receipt Date: 20100629
  Transmission Date: 20110219
  Serious: Yes (Other)
  Sender: FDA-Public Use
  Company Number: DE-MYLANLABS-2010S1011707

PATIENT
  Age: 56 Year
  Sex: Female

DRUGS (5)
  1. LAMOTRIGINE [Suspect]
     Indication: CYCLOTHYMIC DISORDER
     Route: 048
  2. LAMOTRIGINE [Suspect]
     Route: 048
  3. LAMOTRIGINE [Suspect]
     Route: 048
  4. RAMIPRIL [Concomitant]
     Indication: PRODUCT USED FOR UNKNOWN INDICATION
  5. CYMBALTA [Concomitant]
     Indication: BIPOLAR DISORDER
     Dosage: DAILY DOSE: 60 MG MILLGRAM(S) EVERY DAYS
     Route: 048
     Dates: start: 20080117

REACTIONS (2)
  - HYPERSENSITIVITY [None]
  - ORAL DISORDER [None]
